FAERS Safety Report 21284469 (Version 2)
Quarter: 2022Q3

REPORT INFORMATION
  Report Type: Report from Study
  Country: GB (occurrence: GB)
  Receive Date: 20220902
  Receipt Date: 20220906
  Transmission Date: 20221027
  Serious: Yes (Hospitalization, Other)
  Sender: FDA-Public Use
  Company Number: GB-JNJFOC-20220853660

PATIENT
  Age: 63 Year
  Sex: Female
  Weight: 78 kg

DRUGS (20)
  1. SELEXIPAG [Suspect]
     Active Substance: SELEXIPAG
     Indication: Pulmonary hypertension
     Route: 048
     Dates: start: 20200907, end: 20200914
  2. SELEXIPAG [Suspect]
     Active Substance: SELEXIPAG
     Route: 048
     Dates: start: 20200914, end: 20200928
  3. SELEXIPAG [Suspect]
     Active Substance: SELEXIPAG
     Route: 048
     Dates: start: 20200928, end: 20201011
  4. MACITENTAN [Suspect]
     Active Substance: MACITENTAN
     Indication: Pulmonary hypertension
     Route: 048
     Dates: start: 20200713, end: 20210507
  5. SILDENAFIL [Concomitant]
     Active Substance: SILDENAFIL
     Indication: Pulmonary hypertension
     Route: 048
     Dates: start: 20200707, end: 20210424
  6. SILDENAFIL [Concomitant]
     Active Substance: SILDENAFIL
     Route: 048
     Dates: start: 20210428
  7. FUROSEMIDE [Concomitant]
     Active Substance: FUROSEMIDE
     Indication: Fluid retention
     Route: 048
     Dates: start: 20200707, end: 20200907
  8. FUROSEMIDE [Concomitant]
     Active Substance: FUROSEMIDE
     Route: 048
     Dates: start: 20201011
  9. ORAMORPH SR SUSTAINED RELEASE [Concomitant]
     Active Substance: MORPHINE SULFATE
     Indication: Pain
     Route: 048
  10. PANTOPRAZOLE [Concomitant]
     Active Substance: PANTOPRAZOLE
     Indication: Gastrooesophageal reflux disease
     Route: 048
  11. CHOLECALCIFEROL [Concomitant]
     Active Substance: CHOLECALCIFEROL
     Indication: Vitamin supplementation
     Route: 048
  12. LEVOTHYROXINE [Concomitant]
     Active Substance: LEVOTHYROXINE
     Indication: Hypothyroidism
     Route: 048
  13. ASPIRIN [Concomitant]
     Active Substance: ASPIRIN
     Indication: Anticoagulant therapy
     Route: 048
     Dates: end: 20210507
  14. FLOLAN [Concomitant]
     Active Substance: EPOPROSTENOL SODIUM
     Indication: Pulmonary hypertension
     Dosage: TOTAL DAILY DOSE 10
     Dates: start: 20210507, end: 20210607
  15. FLOLAN [Concomitant]
     Active Substance: EPOPROSTENOL SODIUM
     Dosage: TOTAL DAILY DOSE 12
     Dates: start: 20210607, end: 20210615
  16. FLOLAN [Concomitant]
     Active Substance: EPOPROSTENOL SODIUM
     Dosage: TOTAL DAILY DOSE 13
     Dates: start: 20210615, end: 20210803
  17. FLOLAN [Concomitant]
     Active Substance: EPOPROSTENOL SODIUM
     Dosage: TOTAL DAILY DOSE 17
     Dates: start: 20210803, end: 20210914
  18. FLOLAN [Concomitant]
     Active Substance: EPOPROSTENOL SODIUM
     Dosage: TOTAL DAILY DOSE 20
     Dates: start: 20210914, end: 20211012
  19. FLOLAN [Concomitant]
     Active Substance: EPOPROSTENOL SODIUM
     Dosage: TOTAL DAILY DOSE 23
     Dates: start: 20211012
  20. ADEMPAS [Concomitant]
     Active Substance: RIOCIGUAT
     Indication: Pulmonary hypertension
     Route: 048
     Dates: start: 20210426, end: 20210428

REACTIONS (3)
  - Pulmonary veno-occlusive disease [Recovered/Resolved]
  - Pericardial effusion [Unknown]
  - Pulmonary arterial hypertension [Unknown]

NARRATIVE: CASE EVENT DATE: 20200901
